FAERS Safety Report 5169401-0 (Version None)
Quarter: 2006Q4

REPORT INFORMATION
  Report Type: 
  Country: None (occurrence: None)
  Receive Date: 20061201
  Receipt Date: 20061122
  Transmission Date: 20070319
  Serious: Yes (Hospitalization, Other)
  Sender: FDA-Public Use
  Company Number: 232779

PATIENT
  Age: 76 Year
  Sex: Male

DRUGS (10)
  1. LUCENTIS [Suspect]
     Indication: DRUG USE FOR UNKNOWN INDICATION
     Dates: start: 20060908
  2. ALTACE [Concomitant]
  3. ISOSORBIDE (ISOSORBIDE) [Concomitant]
  4. METOPROLOL TARTRATE [Concomitant]
  5. ASPIRIN [Concomitant]
  6. PRAVACHOL [Concomitant]
  7. FLOMAX [Concomitant]
  8. PROSCAR [Concomitant]
  9. PRESERVISION AREDS (ASCORBIC ACID, BETA CAROTENE, COPPER, VITAMIN E, Z [Concomitant]
  10. FISH OIL (FISH OIL) [Concomitant]

REACTIONS (3)
  - CARDIAC ARREST [None]
  - CARDIAC FAILURE CONGESTIVE [None]
  - URINARY TRACT INFECTION [None]
